FAERS Safety Report 21279571 (Version 1)
Quarter: 2022Q3

REPORT INFORMATION
  Report Type: Spontaneous
  Country: US (occurrence: None)
  Receive Date: 20220831
  Receipt Date: 20220831
  Transmission Date: 20221027
  Serious: Yes (Life-Threatening, Hospitalization)
  Sender: FDA-Public Use
  Company Number: None

PATIENT
  Age: 6 Year
  Sex: Male
  Weight: 16.6 kg

DRUGS (1)
  1. TOSITUMOMAB I-131 [Suspect]
     Active Substance: TOSITUMOMAB I-131
     Indication: Neuroblastoma
     Dosage: OTHER QUANTITY : 321 MCI;?FREQUENCY : ONCE;?
     Route: 042
     Dates: start: 20220630, end: 20220630

REACTIONS (9)
  - Febrile neutropenia [None]
  - Septic shock [None]
  - Pseudomonas infection [None]
  - Pneumatosis intestinalis [None]
  - Pseudomonal bacteraemia [None]
  - Respirovirus test positive [None]
  - Coagulopathy [None]
  - Disseminated intravascular coagulation [None]
  - Illness [None]

NARRATIVE: CASE EVENT DATE: 20220805
